FAERS Safety Report 4532498-2 (Version None)
Quarter: 2004Q4

REPORT INFORMATION
  Report Type: 
  Country: None (occurrence: None)
  Receive Date: 20041206
  Receipt Date: 20040921
  Transmission Date: 20050328
  Serious: No
  Sender: FDA-Public Use
  Company Number: USA040978842

PATIENT
  Age: 49 Year
  Sex: Female
  Weight: 68 kg

DRUGS (4)
  1. CYMBALTA [Suspect]
     Indication: DEPRESSION
     Dosage: 30 MG DAY
     Dates: start: 20040920
  2. ZOCOR (SIMVASTATIN RATIOPHARM) [Concomitant]
  3. ALTACE (RAMIPRIL) [Concomitant]
  4. NEXIUM [Concomitant]

REACTIONS (1)
  - DIARRHOEA [None]
